FAERS Safety Report 22192046 (Version 1)
Quarter: 2023Q2

REPORT INFORMATION
  Report Type: Spontaneous
  Country: US (occurrence: US)
  Receive Date: 20230410
  Receipt Date: 20230410
  Transmission Date: 20230722
  Serious: Yes (Other)
  Sender: FDA-Public Use
  Company Number: US-ELI_LILLY_AND_COMPANY-US202304001340

PATIENT
  Age: 53 Year
  Sex: Female

DRUGS (1)
  1. EMGALITY [Suspect]
     Active Substance: GALCANEZUMAB-GNLM
     Indication: Product used for unknown indication
     Dosage: 120 MG, UNKNOWN
     Route: 065
     Dates: start: 202303

REACTIONS (6)
  - Seizure [Unknown]
  - Balance disorder [Unknown]
  - Headache [Unknown]
  - Dizziness [Unknown]
  - Visual impairment [Unknown]
  - Tachycardia [Unknown]

NARRATIVE: CASE EVENT DATE: 20230401
